FAERS Safety Report 9562958 (Version 1)
Quarter: 2013Q3

REPORT INFORMATION
  Report Type: Spontaneous
  Country: US (occurrence: US)
  Receive Date: 20130927
  Receipt Date: 20130927
  Transmission Date: 20140515
  Serious: Yes (Other)
  Sender: FDA-Public Use
  Company Number: CHPA2013US014737

PATIENT
  Age: 53 Year
  Sex: Male

DRUGS (2)
  1. CONTROL PLP [Suspect]
     Indication: SMOKING CESSATION THERAPY
     Dosage: 21 MG, QD
     Route: 062
     Dates: start: 20130917
  2. CONTROL PLP [Suspect]
     Dosage: 7 MG, QD
     Route: 062
     Dates: start: 201306

REACTIONS (4)
  - Diabetes mellitus [Recovering/Resolving]
  - Pruritus [Recovered/Resolved]
  - Treatment noncompliance [Unknown]
  - Overdose [Unknown]
